FAERS Safety Report 13280743 (Version 1)
Quarter: 2017Q1

REPORT INFORMATION
  Report Type: Spontaneous
  Country: FR (occurrence: FR)
  Receive Date: 20170301
  Receipt Date: 20170301
  Transmission Date: 20170428
  Serious: Yes (Life-Threatening, Other)
  Sender: FDA-Public Use
  Company Number: FR-ACCORD-048609

PATIENT
  Age: 73 Year
  Sex: Female

DRUGS (5)
  1. OXALIPLATIN KABI [Suspect]
     Active Substance: OXALIPLATIN
     Indication: COLON CANCER
     Route: 042
     Dates: start: 20161128
  2. FLUOROURACIL ACCORD [Suspect]
     Active Substance: FLUOROURACIL
     Indication: COLON CANCER
     Dosage: ALSO RECEIVED INFUSION OF 3500 MG ONCE DAILY
     Route: 040
     Dates: start: 20161128
  3. LEVOFOLINATE SODIUM MEDAC [Concomitant]
     Route: 042
     Dates: start: 20161128
  4. SOLU-MEDROL [Concomitant]
     Active Substance: METHYLPREDNISOLONE SODIUM SUCCINATE
     Indication: COLON CANCER
     Route: 042
     Dates: start: 20161128, end: 20161226
  5. EMEND [Concomitant]
     Active Substance: APREPITANT
     Indication: VOMITING
     Route: 048
     Dates: start: 20161128, end: 20170123

REACTIONS (2)
  - Hepatitis [Recovering/Resolving]
  - Neutropenia [Unknown]

NARRATIVE: CASE EVENT DATE: 20170116
